FAERS Safety Report 18958782 (Version 1)
Quarter: 2021Q1

REPORT INFORMATION
  Report Type: Spontaneous
  Country: TR (occurrence: TR)
  Receive Date: 20210302
  Receipt Date: 20210302
  Transmission Date: 20210420
  Serious: Yes (Hospitalization, Other)
  Sender: FDA-Public Use
  Company Number: TR-GLAXOSMITHKLINE-TR2021TRK047280

PATIENT
  Sex: Female

DRUGS (17)
  1. AMOXICILLIN + CLAVULANATE [Concomitant]
     Active Substance: AMOXICILLIN\CLAVULANATE POTASSIUM
     Indication: HIDRADENITIS
     Dosage: UNK
  2. ISOTRETINOIN. [Suspect]
     Active Substance: ISOTRETINOIN
     Indication: HIDRADENITIS
     Dosage: UNK 20 MG TO 50 MG/ DAY
     Route: 048
  3. USTEKINUMAB [Suspect]
     Active Substance: USTEKINUMAB
     Indication: RENAL AMYLOIDOSIS
  4. CLINDAMYCIN. [Concomitant]
     Active Substance: CLINDAMYCIN
     Indication: HIDRADENITIS
     Dosage: UNK
  5. ADALIMUMAB [Suspect]
     Active Substance: ADALIMUMAB
     Dosage: 80 MG AT SECOND WEEK
  6. RIFAMPICIN [Concomitant]
     Active Substance: RIFAMPIN
     Indication: HIDRADENITIS
     Dosage: UNK
  7. TETRACYCLINE [Concomitant]
     Active Substance: TETRACYCLINE
     Indication: HIDRADENITIS
     Dosage: UNK
  8. ACITRETIN. [Suspect]
     Active Substance: ACITRETIN
     Indication: HIDRADENITIS
     Dosage: 35 MG, 1D FOR 2 TO 3 MONTHS
  9. ADALIMUMAB [Suspect]
     Active Substance: ADALIMUMAB
     Dosage: 40 MG EVERY 2 WEEKS FOR A YEAR
  10. ADALIMUMAB [Suspect]
     Active Substance: ADALIMUMAB
     Dosage: 40 MG EVERY WEEK
  11. USTEKINUMAB [Suspect]
     Active Substance: USTEKINUMAB
     Indication: HIDRADENITIS
     Dosage: 45 MG AT 0, 4, AND 16TH WEEKS
  12. ISOTRETINOIN. [Suspect]
     Active Substance: ISOTRETINOIN
     Indication: RENAL AMYLOIDOSIS
  13. ADALIMUMAB [Suspect]
     Active Substance: ADALIMUMAB
     Indication: HIDRADENITIS
     Dosage: 80 MG (WEEK 0)
  14. ADALIMUMAB [Suspect]
     Active Substance: ADALIMUMAB
     Dosage: 160 MG (WEEK 0)
  15. ADALIMUMAB [Suspect]
     Active Substance: ADALIMUMAB
     Indication: RENAL AMYLOIDOSIS
     Dosage: 40 MG (WEEK 2)
  16. INFLIXIMAB [Suspect]
     Active Substance: INFLIXIMAB
     Indication: HIDRADENITIS
     Dosage: UNK 0, 2, 6 TH WEEKS AND EVERY 8 WEEKS THEREAFTER FOR 30 WEEKS
     Route: 042
  17. INFLIXIMAB [Suspect]
     Active Substance: INFLIXIMAB
     Indication: RENAL AMYLOIDOSIS

REACTIONS (3)
  - Wound infection bacterial [Unknown]
  - Suicide attempt [Unknown]
  - Drug ineffective [Unknown]
